FAERS Safety Report 6810287-3 (Version None)
Quarter: 2010Q2

REPORT INFORMATION
  Report Type: 
  Country: None (occurrence: None)
  Receive Date: 20100630
  Receipt Date: 20100621
  Transmission Date: 20101027
  Serious: Yes (Life-Threatening, Other)
  Sender: FDA-Public Use
  Company Number: JP-BRISTOL-MYERS SQUIBB COMPANY-15157290

PATIENT
  Age: 67 Year
  Sex: Male
  Weight: 73 kg

DRUGS (4)
  1. ABILIFY [Suspect]
     Indication: BIPOLAR I DISORDER
     Dosage: ALSO TAKEN 3MG/DAY 15MG 27APR09-18MAY10,387D 12MG 01JUN10-ONG
     Route: 048
     Dates: start: 20090427
  2. LIMAS [Suspect]
     Indication: BIPOLAR I DISORDER
     Dosage: TABS
     Route: 048
     Dates: start: 19970801, end: 20100518
  3. DEPAKENE [Concomitant]
     Dosage: DEPAKENE R TABS
     Dates: start: 20000101, end: 20100518
  4. ALMARL [Concomitant]
     Dates: start: 20020722, end: 20100518

REACTIONS (4)
  - DIABETIC KETOACIDOSIS [None]
  - ELECTROCARDIOGRAM ABNORMAL [None]
  - RENAL FAILURE ACUTE [None]
  - THERAPEUTIC AGENT TOXICITY [None]
